FAERS Safety Report 18536730 (Version 1)
Quarter: 2020Q4

REPORT INFORMATION
  Report Type: Spontaneous
  Country: PL (occurrence: PL)
  Receive Date: 20201123
  Receipt Date: 20201123
  Transmission Date: 20210114
  Serious: Yes (Other)
  Sender: FDA-Public Use
  Company Number: NVSC2020PL305019

PATIENT
  Age: 68 Year
  Sex: Female

DRUGS (2)
  1. IMATINIB. [Suspect]
     Active Substance: IMATINIB MESYLATE
     Dosage: 600 MG (DAILY)
     Route: 065
     Dates: start: 20170530
  2. IMATINIB. [Suspect]
     Active Substance: IMATINIB MESYLATE
     Indication: CHRONIC MYELOID LEUKAEMIA
     Dosage: 400 MG (DAILY)
     Route: 065

REACTIONS (4)
  - Malignant neoplasm progression [Unknown]
  - Platelet count increased [Unknown]
  - Cytopenia [Unknown]
  - Chronic myeloid leukaemia [Unknown]
